FAERS Safety Report 15798406 (Version 4)
Quarter: 2019Q1

REPORT INFORMATION
  Report Type: Spontaneous
  Country: TR (occurrence: TR)
  Receive Date: 20190108
  Receipt Date: 20190305
  Transmission Date: 20190417
  Serious: Yes (Hospitalization)
  Sender: FDA-Public Use
  Company Number: TR-PFIZER INC-2019006674

PATIENT
  Age: 75 Year
  Sex: Female

DRUGS (25)
  1. PANTPAS [Suspect]
     Active Substance: PANTOPRAZOLE SODIUM
     Indication: CARDIAC FAILURE
  2. CANDESARTAN/HYDROCHLOROTHIAZIDE [Concomitant]
     Active Substance: CANDESARTAN CILEXETIL\HYDROCHLOROTHIAZIDE
     Indication: ATRIAL FIBRILLATION
     Dosage: UNK (16/12.5 MG)
     Route: 065
  3. AMIODARONE [Concomitant]
     Active Substance: AMIODARONE
     Indication: ATRIAL FIBRILLATION
     Dosage: 100 MG, UNK
     Route: 065
  4. RIVAROXABAN [Concomitant]
     Active Substance: RIVAROXABAN
     Indication: CARDIAC FAILURE
  5. VERAPAMIL [Concomitant]
     Active Substance: VERAPAMIL HYDROCHLORIDE
     Indication: CARDIAC FAILURE
  6. FUROSEMIDE. [Concomitant]
     Active Substance: FUROSEMIDE
     Indication: ATRIAL FIBRILLATION
     Dosage: 40 MG, UNK
     Route: 065
  7. PANTPAS [Suspect]
     Active Substance: PANTOPRAZOLE SODIUM
     Indication: CORONARY ARTERY DISEASE
  8. AMIODARONE [Concomitant]
     Active Substance: AMIODARONE
     Indication: CORONARY ARTERY DISEASE
  9. L-THYROXINE [Concomitant]
     Active Substance: LEVOTHYROXINE
     Indication: HYPOTHYROIDISM
     Dosage: 100 UG, UNK
     Route: 065
  10. L-THYROXINE [Concomitant]
     Active Substance: LEVOTHYROXINE
     Dosage: UNK (DOSAGE WAS INCREASED)
  11. AMIODARONE [Concomitant]
     Active Substance: AMIODARONE
     Indication: CARDIAC FAILURE
  12. RIVAROXABAN [Concomitant]
     Active Substance: RIVAROXABAN
     Indication: ATRIAL FIBRILLATION
     Dosage: 15 MG, UNK
     Route: 065
  13. VERAPAMIL [Concomitant]
     Active Substance: VERAPAMIL HYDROCHLORIDE
     Indication: CORONARY ARTERY DISEASE
  14. FUROSEMIDE. [Concomitant]
     Active Substance: FUROSEMIDE
     Indication: CORONARY ARTERY DISEASE
  15. SPIRONOLACTONE. [Concomitant]
     Active Substance: SPIRONOLACTONE
     Indication: CARDIAC FAILURE
  16. VERAPAMIL [Concomitant]
     Active Substance: VERAPAMIL HYDROCHLORIDE
     Indication: ATRIAL FIBRILLATION
     Dosage: 120 MG, BID
     Route: 065
  17. FUROSEMIDE. [Concomitant]
     Active Substance: FUROSEMIDE
     Indication: CARDIAC FAILURE
  18. LEFLUNOMIDE. [Concomitant]
     Active Substance: LEFLUNOMIDE
     Indication: RHEUMATOID ARTHRITIS
     Dosage: 20 MG, UNK
     Route: 065
  19. RIVAROXABAN [Concomitant]
     Active Substance: RIVAROXABAN
     Indication: CORONARY ARTERY DISEASE
  20. SPIRONOLACTONE. [Concomitant]
     Active Substance: SPIRONOLACTONE
     Indication: ATRIAL FIBRILLATION
     Dosage: 25 MG, UNK
     Route: 065
  21. CANDESARTAN/HYDROCHLOROTHIAZIDE [Concomitant]
     Active Substance: CANDESARTAN CILEXETIL\HYDROCHLOROTHIAZIDE
     Indication: CORONARY ARTERY DISEASE
  22. CANDESARTAN/HYDROCHLOROTHIAZIDE [Concomitant]
     Active Substance: CANDESARTAN CILEXETIL\HYDROCHLOROTHIAZIDE
     Indication: CARDIAC FAILURE
  23. SPIRONOLACTONE. [Concomitant]
     Active Substance: SPIRONOLACTONE
     Indication: CORONARY ARTERY DISEASE
  24. PANTPAS [Suspect]
     Active Substance: PANTOPRAZOLE SODIUM
     Indication: DYSPEPSIA
     Dosage: 40 MG, UNK
  25. PANTPAS [Suspect]
     Active Substance: PANTOPRAZOLE SODIUM
     Indication: ATRIAL FIBRILLATION

REACTIONS (2)
  - Gastric mucosal hypertrophy [Unknown]
  - Intentional product misuse [Unknown]
